FAERS Safety Report 5869085-X (Version None)
Quarter: 2008Q3

REPORT INFORMATION
  Report Type: 
  Country: None (occurrence: None)
  Receive Date: 20080903
  Receipt Date: 20080818
  Transmission Date: 20090109
  Serious: Yes (Other)
  Sender: FDA-Public Use
  Company Number: US-AVENTIS-200815499US

PATIENT
  Age: 86 Year
  Sex: Male
  Weight: 68.04 kg

DRUGS (1)
  1. LOVENOX [Suspect]
     Indication: HIP SURGERY
     Dosage: DOSE: UNK

REACTIONS (4)
  - LEG AMPUTATION [None]
  - PERIPHERAL ISCHAEMIA [None]
  - POOR PERIPHERAL CIRCULATION [None]
  - WRONG TECHNIQUE IN DRUG USAGE PROCESS [None]
